FAERS Safety Report 15335315 (Version 2)
Quarter: 2021Q2

REPORT INFORMATION
  Report Type: Spontaneous
  Country: FR (occurrence: FR)
  Receive Date: 20180830
  Receipt Date: 20210514
  Transmission Date: 20210716
  Serious: Yes (Hospitalization)
  Sender: FDA-Public Use
  Company Number: PHHY2018FR082809

PATIENT
  Age: 75 Year
  Sex: Male
  Weight: 37 kg

DRUGS (10)
  1. PIPERACILLIN. [Suspect]
     Active Substance: PIPERACILLIN SODIUM
     Indication: BURKHOLDERIA INFECTION
     Dosage: 12 G, QD
     Route: 042
     Dates: start: 20180414, end: 20180425
  2. OLIMEL E [Concomitant]
     Active Substance: AMINO ACIDS\DEXTROSE\ELECTROLYTES NOS\SOYBEAN OIL
     Indication: PRODUCT USED FOR UNKNOWN INDICATION
     Dosage: UNK
     Route: 065
  3. TAVANIC [Suspect]
     Active Substance: LEVOFLOXACIN
     Indication: BURKHOLDERIA INFECTION
     Dosage: 1000 MG, QD
     Route: 042
     Dates: start: 20180420, end: 20180425
  4. SULFAMETHOXAZOLE [Concomitant]
     Active Substance: SULFAMETHOXAZOLE
     Indication: BURKHOLDERIA INFECTION
     Dosage: 3600 MG
     Route: 065
  5. BACTRIM [Suspect]
     Active Substance: SULFAMETHOXAZOLE\TRIMETHOPRIM
     Dosage: 1200 MG, TOTAL
     Route: 042
     Dates: start: 20180423, end: 20180425
  6. OCTREOTIDE. [Concomitant]
     Active Substance: OCTREOTIDE
     Indication: PRODUCT USED FOR UNKNOWN INDICATION
     Dosage: UNK
     Route: 065
  7. PANTOPRAZOLE [Concomitant]
     Active Substance: PANTOPRAZOLE
     Dosage: 40 MG, QD (ERROR IN THE DOSAGE OF PANTOPRAZOLE (80 MG/D INSTEAD OF 40 MG/D). ERROR CORRECTED AS OF 2
     Route: 065
     Dates: start: 20180423
  8. BACTRIM [Suspect]
     Active Substance: SULFAMETHOXAZOLE\TRIMETHOPRIM
     Indication: BURKHOLDERIA INFECTION
     Dosage: 3600 MG, TOTAL (ERROR IN THE DOSAGE OF BACTRIM (1200 MG X3/D INSTEAD OF 400 MG X3/D). ERROR CORRECTE
     Route: 042
     Dates: start: 20180420, end: 20180422
  9. PANTOPRAZOLE [Concomitant]
     Active Substance: PANTOPRAZOLE
     Indication: PRODUCT USED FOR UNKNOWN INDICATION
     Dosage: 80 MG, QD (ERROR IN THE DOSAGE OF PANTOPRAZOLE (80 MG/D INSTEAD OF 40 MG/D). ERROR CORRECTED AS OF 2
     Route: 065
     Dates: start: 20180420, end: 20180422
  10. LOVENOX [Concomitant]
     Active Substance: ENOXAPARIN SODIUM
     Indication: PRODUCT USED FOR UNKNOWN INDICATION
     Dosage: UNK
     Route: 065

REACTIONS (4)
  - Insomnia [Recovered/Resolved]
  - Incorrect dosage administered [Recovered/Resolved]
  - Hallucination [Recovered/Resolved]
  - Disorientation [Recovered/Resolved]

NARRATIVE: CASE EVENT DATE: 20180420
